FAERS Safety Report 7626634-9 (Version None)
Quarter: 2011Q3

REPORT INFORMATION
  Report Type: 
  Country: None (occurrence: None)
  Receive Date: 20110721
  Receipt Date: 20110518
  Transmission Date: 20111222
  Serious: No
  Sender: FDA-Public Use
  Company Number: US-NOVEN-11US002468

PATIENT
  Sex: Male

DRUGS (2)
  1. FENTANYL [Suspect]
     Indication: PAIN
     Dosage: 75 UG, 1 EVERY 72 HOURS
     Route: 062
     Dates: start: 20110501
  2. UNSPECIFIED [Concomitant]
     Indication: PARKINSON'S DISEASE

REACTIONS (4)
  - CHILLS [None]
  - APPLICATION SITE PUSTULES [None]
  - RASH [None]
  - HYPERHIDROSIS [None]
